FAERS Safety Report 10597422 (Version 4)
Quarter: 2016Q4

REPORT INFORMATION
  Report Type: Report from Study
  Country: BR (occurrence: BR)
  Receive Date: 20141121
  Receipt Date: 20161102
  Transmission Date: 20170206
  Serious: Yes (Other)
  Sender: FDA-Public Use
  Company Number: PHHY2014BR151797

PATIENT
  Sex: Female
  Weight: 80 kg

DRUGS (2)
  1. CABERGOLINA [Concomitant]
     Active Substance: CABERGOLINE
     Indication: ACROMEGALY
     Dosage: 1 DF, UNK (MONDAY TO FRIDAY)
     Route: 065
  2. SANDOSTATIN LAR DEPOT [Suspect]
     Active Substance: OCTREOTIDE ACETATE
     Indication: ACROMEGALY
     Dosage: 30 MG, QMO
     Route: 030

REACTIONS (6)
  - Panic disorder [Unknown]
  - Osteoporosis [Unknown]
  - Blood growth hormone increased [Unknown]
  - Cardiomegaly [Unknown]
  - Tachycardia [Unknown]
  - Drug ineffective [Unknown]
